FAERS Safety Report 4834228-3 (Version None)
Quarter: 2005Q4

REPORT INFORMATION
  Report Type: 
  Country: None (occurrence: None)
  Receive Date: 20051122
  Receipt Date: 20051117
  Transmission Date: 20060501
  Serious: Yes (Life-Threatening)
  Sender: FDA-Public Use
  Company Number: JP-BRISTOL-MYERS SQUIBB COMPANY-13186069

PATIENT
  Age: 8 Decade
  Sex: Male

DRUGS (4)
  1. TAXOL [Suspect]
     Indication: NON-SMALL CELL LUNG CANCER
     Route: 042
     Dates: start: 20051116, end: 20051116
  2. DECADRON [Concomitant]
     Route: 042
     Dates: start: 20051116, end: 20051116
  3. ZANTAC [Concomitant]
     Route: 042
     Dates: start: 20051116, end: 20051116
  4. RESTAMIN [Concomitant]
     Route: 048

REACTIONS (2)
  - ANAPHYLACTIC REACTION [None]
  - CARDIOMYOPATHY [None]
